FAERS Safety Report 4973068-1 (Version None)
Quarter: 2006Q2

REPORT INFORMATION
  Report Type: 
  Country: None (occurrence: None)
  Receive Date: 20060414
  Receipt Date: 20060412
  Transmission Date: 20061013
  Serious: Yes (Hospitalization)
  Sender: FDA-Public Use
  Company Number: 2006035773 S

PATIENT
  Age: 62 Year
  Sex: Female

DRUGS (2)
  1. TUMS [Suspect]
     Indication: GASTRIC ULCER
     Route: 048
     Dates: start: 19960101
  2. ROLAIDS [Suspect]
     Indication: GASTRIC ULCER
     Dosage: 12TAB PER DAY
     Route: 048
     Dates: start: 19960101

REACTIONS (2)
  - NEPHROLITHIASIS [None]
  - RENAL DISORDER [None]
